FAERS Safety Report 4775263-3 (Version None)
Quarter: 2005Q3

REPORT INFORMATION
  Report Type: 
  Country: None (occurrence: None)
  Receive Date: 20050921
  Receipt Date: 20050921
  Transmission Date: 20060218
  Serious: No
  Sender: FDA-Public Use
  Company Number: None

PATIENT
  Sex: Female
  Weight: 76.6579 kg

DRUGS (7)
  1. OXALIPLATIN [Suspect]
     Indication: COLON CANCER
     Dosage: 116 MG IV Q 21 DAYS
     Route: 042
     Dates: start: 20050309, end: 20050906
  2. ATIVAN [Concomitant]
  3. BENADRYL [Concomitant]
  4. AVASTIN [Concomitant]
  5. DECADRON [Concomitant]
  6. KYTRIL [Concomitant]
  7. LEUCOVORIN [Concomitant]

REACTIONS (6)
  - BLOOD PRESSURE SYSTOLIC INCREASED [None]
  - CHEST PAIN [None]
  - ERYTHEMA [None]
  - HEART RATE DECREASED [None]
  - INFUSION RELATED REACTION [None]
  - RASH [None]
